FAERS Safety Report 9748200 (Version 2)
Quarter: 2013Q4

REPORT INFORMATION
  Report Type: Spontaneous
  Country: US (occurrence: US)
  Receive Date: 20131212
  Receipt Date: 20131230
  Transmission Date: 20140711
  Serious: Yes (Other)
  Sender: FDA-Public Use
  Company Number: US-JNJFOC-20131203579

PATIENT
  Sex: Female
  Weight: 115.67 kg

DRUGS (30)
  1. XARELTO [Suspect]
     Indication: PNEUMOTHORAX
     Route: 048
     Dates: start: 20130820
  2. XARELTO [Suspect]
     Indication: PNEUMOTHORAX
     Route: 048
     Dates: start: 20131210, end: 20131212
  3. XARELTO [Suspect]
     Indication: DEEP VEIN THROMBOSIS
     Route: 048
     Dates: start: 20130820
  4. XARELTO [Suspect]
     Indication: DEEP VEIN THROMBOSIS
     Route: 048
     Dates: start: 20131210, end: 20131212
  5. XARELTO [Suspect]
     Indication: PULMONARY EMBOLISM
     Route: 048
     Dates: start: 20130820
  6. XARELTO [Suspect]
     Indication: PULMONARY EMBOLISM
     Route: 048
     Dates: start: 20131210, end: 20131212
  7. ADVAIR DISKUS [Concomitant]
     Indication: CHRONIC OBSTRUCTIVE PULMONARY DISEASE
     Dosage: 1 PUFF, 500MCG-50MCG
     Route: 065
  8. ALBUTEROL [Concomitant]
     Indication: CHRONIC OBSTRUCTIVE PULMONARY DISEASE
     Route: 065
  9. NORVASC [Concomitant]
     Indication: HYPERTENSION
     Route: 065
     Dates: start: 20130409
  10. DIGOXIN [Concomitant]
     Indication: ARRHYTHMIA
     Route: 048
     Dates: start: 20130814
  11. ENABLEX [Concomitant]
     Indication: POLLAKIURIA
     Route: 048
  12. FLONASE [Concomitant]
     Indication: PRODUCT USED FOR UNKNOWN INDICATION
     Route: 065
  13. FOSINOPRIL [Concomitant]
     Indication: HYPERTENSION
     Route: 048
     Dates: start: 20110315
  14. LASIX [Concomitant]
     Indication: OEDEMA
     Route: 065
     Dates: start: 20130820
  15. INSULIN [Concomitant]
     Indication: PRODUCT USED FOR UNKNOWN INDICATION
     Dosage: 50/50 PEN DIABETES SLIDING SCALE
     Route: 065
     Dates: start: 20130409
  16. HYDROXYZINE [Concomitant]
     Indication: PAIN
     Route: 048
     Dates: start: 20131029
  17. IPRATROPIUM [Concomitant]
     Indication: CHRONIC OBSTRUCTIVE PULMONARY DISEASE
     Dosage: 0.5MG-3MG
     Route: 065
     Dates: start: 20130804
  18. KLOR-CON [Concomitant]
     Indication: PRODUCT USED FOR UNKNOWN INDICATION
     Route: 065
     Dates: start: 20130820
  19. LIPITOR [Concomitant]
     Indication: HYPERLIPIDAEMIA
     Route: 065
     Dates: start: 20120806
  20. OMEPRAZOLE [Concomitant]
     Indication: PRODUCT USED FOR UNKNOWN INDICATION
     Dosage: BEFORE MEALS
     Route: 065
     Dates: start: 20130820
  21. OXYBUTYNIN [Concomitant]
     Indication: PRODUCT USED FOR UNKNOWN INDICATION
     Route: 065
     Dates: start: 20130820
  22. REGLAN [Concomitant]
     Indication: DIABETES MELLITUS
     Dosage: WITH MEALS
     Route: 065
     Dates: start: 20130820
  23. SINGULAIR [Concomitant]
     Indication: CHRONIC OBSTRUCTIVE PULMONARY DISEASE
     Route: 065
     Dates: start: 20130409
  24. SPIRIVA [Concomitant]
     Indication: CHRONIC OBSTRUCTIVE PULMONARY DISEASE
     Route: 065
     Dates: start: 20110315
  25. VERAPAMIL [Concomitant]
     Indication: ARRHYTHMIA
     Route: 065
     Dates: start: 20110315
  26. VITAMIN B6 [Concomitant]
     Indication: PRODUCT USED FOR UNKNOWN INDICATION
  27. MUCINEX [Concomitant]
     Indication: PRODUCT USED FOR UNKNOWN INDICATION
     Route: 065
  28. MAGNESIUM OXIDE [Concomitant]
     Indication: PRODUCT USED FOR UNKNOWN INDICATION
     Route: 065
     Dates: start: 20130820
  29. CALCIUM [Concomitant]
     Indication: PRODUCT USED FOR UNKNOWN INDICATION
     Route: 065
  30. VENTOLIN HFA [Concomitant]
     Indication: CHRONIC OBSTRUCTIVE PULMONARY DISEASE
     Dosage: 2 PUFFS EVERY 4-6 HRS
     Route: 065
     Dates: start: 20110315

REACTIONS (1)
  - Chromaturia [Unknown]
